FAERS Safety Report 26010653 (Version 1)
Quarter: 2025Q4

REPORT INFORMATION
  Report Type: Spontaneous
  Country: US (occurrence: US)
  Receive Date: 20251107
  Receipt Date: 20251107
  Transmission Date: 20260118
  Serious: Yes (Other)
  Sender: RANBAXY
  Company Number: US-SUN PHARMACEUTICAL INDUSTRIES LTD-2025R1-534817

PATIENT
  Age: 11 Year
  Sex: Male

DRUGS (5)
  1. GABAPENTIN [Suspect]
     Active Substance: GABAPENTIN
     Indication: Seizure
     Dosage: UNK
     Route: 065
  2. SEVOFLURANE [Suspect]
     Active Substance: SEVOFLURANE
     Indication: Induction of anaesthesia
     Dosage: UNK
     Route: 065
  3. PROPOFOL [Suspect]
     Active Substance: PROPOFOL
     Indication: Induction of anaesthesia
     Dosage: UNK
     Route: 042
  4. FENTANYL [Suspect]
     Active Substance: FENTANYL
     Indication: Induction of anaesthesia
     Dosage: UNK
     Route: 065
  5. ROCURONIUM [Suspect]
     Active Substance: ROCURONIUM BROMIDE
     Indication: Induction of anaesthesia
     Dosage: UNK
     Route: 065

REACTIONS (4)
  - Bradycardia [Recovering/Resolving]
  - Cardiac arrest [Recovering/Resolving]
  - Hypotension [Unknown]
  - Toxicity to various agents [Unknown]
